FAERS Safety Report 7943437-6 (Version None)
Quarter: 2011Q4

REPORT INFORMATION
  Report Type: 
  Country: None (occurrence: None)
  Receive Date: 20111128
  Receipt Date: 20111123
  Transmission Date: 20120403
  Serious: Yes (Hospitalization)
  Sender: FDA-Public Use
  Company Number: DK-TEVA-310506ISR

PATIENT
  Sex: Male
  Weight: 75 kg

DRUGS (10)
  1. DOXORUBICIN HCL [Suspect]
     Indication: DIFFUSE LARGE B-CELL LYMPHOMA
     Dosage: 98.5 MG, UNK
     Route: 042
     Dates: start: 20100924
  2. CYCLOPHOSPHAMIDE [Suspect]
     Indication: DIFFUSE LARGE B-CELL LYMPHOMA
     Dosage: 1463 MG, UNK
     Route: 042
     Dates: start: 20100924
  3. OXYCODONE HCL [Concomitant]
     Indication: ABDOMINAL PAIN UPPER
     Dosage: 5 MG, UNK
     Route: 048
     Dates: start: 20100903
  4. RITUXIMAB [Suspect]
     Indication: DIFFUSE LARGE B-CELL LYMPHOMA
     Dosage: 700 MG, UNK
     Route: 042
     Dates: start: 20100924
  5. VINCRISTINE [Suspect]
     Indication: DIFFUSE LARGE B-CELL LYMPHOMA
     Dosage: 2 MG, UNK
     Route: 042
     Dates: start: 20100924
  6. METOPROLOL TARTRATE [Concomitant]
     Indication: ATRIAL FIBRILLATION
     Dosage: 100 MG, UNK
     Route: 048
     Dates: start: 20101209, end: 20110102
  7. PREDNISONE TAB [Suspect]
     Indication: DIFFUSE LARGE B-CELL LYMPHOMA
     Dosage: 100 MG, UNK
     Route: 048
     Dates: start: 20100924
  8. NEUPOGEN [Suspect]
     Indication: DIFFUSE LARGE B-CELL LYMPHOMA
     Dosage: 06 MG, UNK
     Route: 058
     Dates: start: 20100925
  9. MORPHINE [Concomitant]
     Indication: ABDOMINAL PAIN UPPER
     Dosage: 20 MG, BID
     Route: 048
     Dates: start: 20100901
  10. PANTOPRAZOLE [Concomitant]
     Dosage: 40 MG, QD
     Route: 048
     Dates: start: 20100909

REACTIONS (2)
  - DEEP VEIN THROMBOSIS [None]
  - LUNG INFECTION [None]
